APPROVED DRUG PRODUCT: LORAZEPAM
Active Ingredient: LORAZEPAM
Strength: 2MG/ML
Dosage Form/Route: CONCENTRATE;ORAL
Application: A091407 | Product #001
Applicant: LUPIN LTD
Approved: Feb 19, 2013 | RLD: No | RS: No | Type: DISCN